FAERS Safety Report 17914934 (Version 1)
Quarter: 2020Q2

REPORT INFORMATION
  Report Type: Spontaneous
  Country: US (occurrence: US)
  Receive Date: 20200618
  Receipt Date: 20200618
  Transmission Date: 20200714
  Serious: No
  Sender: FDA-Public Use
  Company Number: US-NEXGEN PHARMA, INC.-2086092

PATIENT
  Age: 48 Year
  Sex: Male

DRUGS (1)
  1. CHENODIOL. [Suspect]
     Active Substance: CHENODIOL
     Indication: LIPID METABOLISM DISORDER
     Route: 048
     Dates: start: 20170625

REACTIONS (1)
  - Gait disturbance [Not Recovered/Not Resolved]
